FAERS Safety Report 17000441 (Version 1)
Quarter: 2019Q4

REPORT INFORMATION
  Report Type: Spontaneous
  Country: US (occurrence: US)
  Receive Date: 20191106
  Receipt Date: 20191106
  Transmission Date: 20200122
  Serious: Yes (Other)
  Sender: FDA-Public Use
  Company Number: US-BAUSCH-BL-2019-059168

PATIENT
  Sex: Female

DRUGS (3)
  1. KETOROLAC [Suspect]
     Active Substance: KETOROLAC TROMETHAMINE
     Indication: PRODUCT USED FOR UNKNOWN INDICATION
     Dosage: GENERIC
     Route: 065
  2. VYZULTA [Suspect]
     Active Substance: LATANOPROSTENE BUNOD
     Indication: POSTOPERATIVE CARE
     Route: 065
     Dates: start: 2019
  3. VYZULTA [Suspect]
     Active Substance: LATANOPROSTENE BUNOD
     Indication: PRODUCT USE IN UNAPPROVED INDICATION

REACTIONS (3)
  - Corneal oedema [Unknown]
  - Product use in unapproved indication [Unknown]
  - Corneal epithelium defect [Unknown]

NARRATIVE: CASE EVENT DATE: 2019
